FAERS Safety Report 17306104 (Version 4)
Quarter: 2020Q2

REPORT INFORMATION
  Report Type: Spontaneous
  Country: TW (occurrence: TW)
  Receive Date: 20200123
  Receipt Date: 20200408
  Transmission Date: 20200713
  Serious: Yes (Hospitalization)
  Sender: FDA-Public Use
  Company Number: TW-TAKEDA-2020TJP001229

PATIENT
  Age: 62 Year
  Sex: Female

DRUGS (1)
  1. DEXILANT [Suspect]
     Active Substance: DEXLANSOPRAZOLE
     Indication: GASTROOESOPHAGEAL REFLUX DISEASE
     Dosage: 60 MILLIGRAM, QD
     Route: 048
     Dates: start: 20180904

REACTIONS (8)
  - Herpes virus infection [Recovering/Resolving]
  - Mouth ulceration [Recovering/Resolving]
  - Cutaneous lupus erythematosus [Recovering/Resolving]
  - Oral herpes [Unknown]
  - Dysphonia [Unknown]
  - Systemic lupus erythematosus [Recovering/Resolving]
  - Rash pruritic [Recovering/Resolving]
  - Pigmentation disorder [Recovering/Resolving]

NARRATIVE: CASE EVENT DATE: 20181028
